FAERS Safety Report 9266194 (Version 1)
Quarter: 2013Q2

REPORT INFORMATION
  Report Type: Spontaneous
  Country: US (occurrence: US)
  Receive Date: 20130502
  Receipt Date: 20130502
  Transmission Date: 20140414
  Serious: Yes (Other)
  Sender: FDA-Public Use
  Company Number: US-009507513-1304USA017317

PATIENT
  Sex: Male

DRUGS (9)
  1. REMERON [Suspect]
  2. SEROQUEL [Concomitant]
  3. XANAX [Concomitant]
  4. NEXIUM [Concomitant]
  5. ALPRAZOLAM [Concomitant]
     Dosage: 4 DF, QD
  6. OXYCODONE [Concomitant]
     Dosage: 4 DF, QD
  7. PHENERGAN (PROMETHAZINE HYDROCHLORIDE) [Concomitant]
     Dosage: UNK, PRN
  8. LYRICA [Concomitant]
     Indication: PAIN
  9. LYRICA [Concomitant]
     Indication: INFLAMMATION

REACTIONS (2)
  - Suicidal ideation [Unknown]
  - Mania [Unknown]
